FAERS Safety Report 10219466 (Version 2)
Quarter: 2014Q2

REPORT INFORMATION
  Report Type: Report from Study
  Country: CA (occurrence: CA)
  Receive Date: 20140605
  Receipt Date: 20140605
  Transmission Date: 20141212
  Serious: Yes (Other)
  Sender: FDA-Public Use
  Company Number: CA-ABBVIE-14K-028-1242760-00

PATIENT
  Sex: Male
  Weight: 64.92 kg

DRUGS (1)
  1. HUMIRA [Suspect]
     Indication: CROHN^S DISEASE
     Route: 058
     Dates: start: 20090207

REACTIONS (3)
  - Gastrointestinal anastomotic leak [Unknown]
  - Renal disorder [Not Recovered/Not Resolved]
  - Infection [Unknown]
